FAERS Safety Report 5009973-X (Version None)
Quarter: 2006Q2

REPORT INFORMATION
  Report Type: 
  Country: None (occurrence: None)
  Receive Date: 20060524
  Receipt Date: 20060518
  Transmission Date: 20061013
  Serious: Yes (Hospitalization, Disabling, Other)
  Sender: FDA-Public Use
  Company Number: CA-JNJFOC-20060304082

PATIENT
  Sex: Male

DRUGS (16)
  1. LEVAQUIN [Suspect]
     Route: 048
  2. LEVAQUIN [Suspect]
     Indication: PNEUMONIA
     Route: 048
  3. HEPARIN [Concomitant]
     Indication: ANTICOAGULANT THERAPY
  4. OMEPRAZOLE [Concomitant]
     Route: 048
  5. ACETAMINOPHEN [Concomitant]
     Indication: SHOULDER PAIN
  6. NITROGLYCERIN [Concomitant]
     Indication: ANGINA PECTORIS
  7. LORAZEPAM [Concomitant]
  8. SALINE [Concomitant]
  9. SALINE [Concomitant]
  10. SALINE [Concomitant]
  11. SALINE [Concomitant]
  12. VITAMIN E [Concomitant]
  13. ZINC [Concomitant]
  14. LUTEIN [Concomitant]
  15. SELENIUM SULFIDE [Concomitant]
  16. VITAMINS B AND C AND B6 [Concomitant]

REACTIONS (6)
  - BLINDNESS [None]
  - DRUG ADMINISTRATION ERROR [None]
  - INCORRECT DOSE ADMINISTERED [None]
  - MACULAR DEGENERATION [None]
  - OVERDOSE [None]
  - VISUAL FIELD DEFECT [None]
